FAERS Safety Report 14152131 (Version 5)
Quarter: 2018Q2

REPORT INFORMATION
  Report Type: Report from Study
  Country: JP (occurrence: JP)
  Receive Date: 20171102
  Receipt Date: 20180410
  Transmission Date: 20180711
  Serious: Yes (Other)
  Sender: FDA-Public Use
  Company Number: JP-ASTELLAS-2017JP020640

PATIENT
  Age: 80 Year
  Sex: Male
  Weight: 62 kg

DRUGS (28)
  1. LEUPLIN [Concomitant]
     Active Substance: LEUPROLIDE ACETATE
     Indication: HORMONE-REFRACTORY PROSTATE CANCER
     Route: 058
     Dates: start: 20161215
  2. LOXOPROFEN NA [Concomitant]
     Active Substance: LOXOPROFEN SODIUM
     Indication: BONE PAIN
     Route: 061
     Dates: start: 20170831, end: 20171114
  3. ZETIA [Concomitant]
     Active Substance: EZETIMIBE
     Indication: HYPERCHOLESTEROLAEMIA
     Route: 048
  4. TAMSULOSIN HYDROCHLORIDE. [Concomitant]
     Active Substance: TAMSULOSIN HYDROCHLORIDE
     Indication: BENIGN PROSTATIC HYPERPLASIA
     Dosage: 0.1 MG, ONCE DAILY
     Route: 048
     Dates: start: 20170512
  5. CLEAR BONE [Concomitant]
     Indication: BONE SCAN
     Dosage: UNK UNK, UNKNOWN FREQ.
     Route: 042
     Dates: start: 20170824, end: 20170824
  6. URSODEOXYCHOLIC ACID [Concomitant]
     Active Substance: URSODIOL
     Indication: HEPATIC FUNCTION ABNORMAL
     Route: 048
     Dates: start: 20171026
  7. AZILVA [Concomitant]
     Active Substance: AZILSARTAN KAMEDOXOMIL
     Indication: HYPERTENSION
     Route: 048
     Dates: end: 20170930
  8. THYRADIN-S [Concomitant]
     Active Substance: LEVOTHYROXINE
     Indication: HYPOTHYROIDISM
     Route: 048
  9. KARY UNI                           /00528801/ [Concomitant]
     Active Substance: PIRENOXINE
     Indication: CATARACT
     Dosage: ADEQUATE DOSE, ONCE OR TWICE DAILY
     Route: 047
  10. MYSLEE [Concomitant]
     Active Substance: ZOLPIDEM TARTRATE
     Indication: INSOMNIA
     Route: 048
  11. SODIUM BICARBONATE. [Concomitant]
     Active Substance: SODIUM BICARBONATE
     Indication: ENDOSCOPY
     Dosage: UNK UNK, UNKNOWN FREQ.
     Route: 048
     Dates: start: 20170902, end: 20170902
  12. MAGMITT [Concomitant]
     Active Substance: MAGNESIUM OXIDE
     Indication: CONSTIPATION
     Route: 048
  13. SOLYUGEN [Concomitant]
     Route: 042
     Dates: start: 20171116, end: 20171116
  14. LOXOPROFEN                         /00890702/ [Concomitant]
     Active Substance: LOXOPROFEN
     Indication: SPINAL OSTEOARTHRITIS
     Route: 048
  15. GASCON [Concomitant]
     Active Substance: DIMETHICONE
     Indication: ENDOSCOPY
     Dosage: UNK UNK, UNKNOWN FREQ.
     Route: 048
     Dates: start: 20170902, end: 20170902
  16. MEDITEC [Concomitant]
     Dosage: ADEQUATE DOSE
     Route: 042
     Dates: start: 20171116, end: 20171116
  17. ENZALUTAMIDE [Suspect]
     Active Substance: ENZALUTAMIDE
     Indication: HORMONE-REFRACTORY PROSTATE CANCER
     Route: 048
     Dates: start: 20170901
  18. CLEAR BONE [Concomitant]
     Route: 042
     Dates: start: 20171116, end: 20171116
  19. XYLOCAINE [Concomitant]
     Active Substance: LIDOCAINE HYDROCHLORIDE
     Indication: LOCAL ANAESTHESIA
     Dosage: UNK UNK, UNKNOWN FREQ.
     Route: 061
     Dates: start: 20170902, end: 20170902
  20. CANDESARTAN                        /01349502/ [Concomitant]
     Active Substance: CANDESARTAN
     Indication: HYPERTENSION
     Route: 048
     Dates: start: 20171001
  21. SOLYUGEN [Concomitant]
     Indication: PROPHYLAXIS
     Dosage: UNK UNK, UNKNOWN FREQ.
     Route: 042
     Dates: start: 20170824, end: 20170824
  22. OMNIPAQUE [Concomitant]
     Active Substance: IOHEXOL
     Route: 042
     Dates: start: 20171116, end: 20171116
  23. PRONASE MS [Concomitant]
     Indication: ENDOSCOPY
     Dosage: UNK UNK, UNKNOWN FREQ.
     Route: 048
     Dates: start: 20170902, end: 20170902
  24. LOXOPROFEN                         /00890702/ [Concomitant]
     Active Substance: LOXOPROFEN
     Indication: METASTASES TO BONE
  25. EQUA [Concomitant]
     Active Substance: VILDAGLIPTIN
     Indication: DIABETES MELLITUS
     Route: 048
  26. VESICARE [Concomitant]
     Active Substance: SOLIFENACIN SUCCINATE
     Indication: HYPERTONIC BLADDER
     Route: 048
     Dates: start: 20170512
  27. OMNIPAQUE [Concomitant]
     Active Substance: IOHEXOL
     Indication: COMPUTERISED TOMOGRAM
     Dosage: UNK UNK, UNKNOWN FREQ.
     Route: 042
     Dates: start: 20170824, end: 20170824
  28. MEDITEC [Concomitant]
     Indication: BONE SCAN
     Dosage: UNK UNK, UNKNOWN FREQ.
     Route: 042
     Dates: start: 20170824, end: 20170824

REACTIONS (2)
  - Tooth fracture [Recovered/Resolved]
  - Hepatic function abnormal [Recovered/Resolved]

NARRATIVE: CASE EVENT DATE: 20171026
